FAERS Safety Report 18684951 (Version 1)
Quarter: 2020Q4

REPORT INFORMATION
  Report Type: Spontaneous
  Country: US (occurrence: US)
  Receive Date: 20201230
  Receipt Date: 20201230
  Transmission Date: 20210114
  Serious: No
  Sender: FDA-Public Use
  Company Number: US-009507513-2012USA009699

PATIENT
  Age: 35 Year
  Sex: Female

DRUGS (2)
  1. GANIRELIX ACETATE. [Suspect]
     Active Substance: GANIRELIX ACETATE
     Indication: INFERTILITY FEMALE
     Dosage: 250 MICROGRAM (MCG) DAILY AS DIRECTED; STRENGTH REPORTED AS 250 MCG/0.5 M
     Route: 058
     Dates: start: 20201112
  2. ESTRADIOL. [Suspect]
     Active Substance: ESTRADIOL
     Dosage: 0.1 MG, QD (DOSING OF 1 PATCH DOSED EVERY OTHER DAY)
     Dates: end: 202012

REACTIONS (1)
  - Pruritus [Unknown]

NARRATIVE: CASE EVENT DATE: 202011
